FAERS Safety Report 9625979 (Version 1)
Quarter: 2013Q4

REPORT INFORMATION
  Report Type: Spontaneous
  Country: US (occurrence: None)
  Receive Date: 20131015
  Receipt Date: 20131015
  Transmission Date: 20140711
  Serious: Yes (Hospitalization)
  Sender: FDA-Public Use
  Company Number: None

PATIENT
  Age: 54 Year
  Sex: Female

DRUGS (2)
  1. CIPRO [Suspect]
  2. LEVAQUIN [Suspect]

REACTIONS (4)
  - Pain in extremity [None]
  - Tendon pain [None]
  - Tendon rupture [None]
  - Chest pain [None]
